FAERS Safety Report 23073938 (Version 1)
Quarter: 2023Q4

REPORT INFORMATION
  Report Type: Spontaneous
  Country: US (occurrence: None)
  Receive Date: 20231014
  Receipt Date: 20231014
  Transmission Date: 20240110
  Serious: No
  Sender: FDA-Public Use
  Company Number: None

PATIENT
  Sex: Male

DRUGS (1)
  1. TATTOO NUMBING CREAM [Suspect]
     Active Substance: LIDOCAINE

REACTIONS (3)
  - Drug hypersensitivity [None]
  - Product label issue [None]
  - Product formulation issue [None]
